FAERS Safety Report 7658342-2 (Version None)
Quarter: 2011Q3

REPORT INFORMATION
  Report Type: 
  Country: None (occurrence: None)
  Receive Date: 20110802
  Receipt Date: 20110718
  Transmission Date: 20111222
  Serious: Yes (Hospitalization, Other)
  Sender: FDA-Public Use
  Company Number: AUR-APL-2011-04273

PATIENT
  Age: 86 Year
  Sex: Male

DRUGS (12)
  1. MEMANTINE HCL [Concomitant]
  2. RANITIDINE [Concomitant]
  3. MULTIVITAMINS (MULTIVITAMS) [Concomitant]
  4. TRIMETHOPRIM + SULFAMETHOXAZOLE [Suspect]
     Indication: URINARY TRACT INFECTION
     Dosage: 80/400 MG (2 IN 1 D), ORAL
     Route: 048
  5. HYDROCHLOROTHIAZIDE [Concomitant]
  6. GALENIC /DOCUSATE/SENNA/(GALENIC /DOCUSATE/SENNA) [Suspect]
  7. IBUPROFEN [Concomitant]
  8. ACETAMINOPRHEN (PARACETAMOL) [Concomitant]
  9. DESCLORATADINE (DESLORATADINE) [Concomitant]
  10. ESCITALOPRAM [Concomitant]
  11. DONEPEZIL HCL [Concomitant]
  12. FERROUS GLUCONATE (FERROUS GLUCONATE) [Concomitant]

REACTIONS (5)
  - MENTAL STATUS CHANGES [None]
  - HYPONATRAEMIA [None]
  - DISORIENTATION [None]
  - FATIGUE [None]
  - ASTHENIA [None]
